FAERS Safety Report 6101007-9 (Version None)
Quarter: 2009Q1

REPORT INFORMATION
  Report Type: 
  Country: None (occurrence: None)
  Receive Date: 20090304
  Receipt Date: 20090226
  Transmission Date: 20090719
  Serious: Yes (Other)
  Sender: FDA-Public Use
  Company Number: US-AMGEN-US298510

PATIENT
  Sex: Male
  Weight: 21 kg

DRUGS (14)
  1. ARANESP [Suspect]
     Indication: RENAL FAILURE CHRONIC
     Route: 058
     Dates: start: 20060123
  2. EPOGEN [Suspect]
     Indication: RENAL FAILURE CHRONIC
     Route: 058
     Dates: start: 20050331, end: 20060123
  3. SODIUM BICARBONATE [Concomitant]
     Route: 065
  4. KLOR-CON [Concomitant]
     Route: 065
  5. LEVOCARNITINE [Concomitant]
     Route: 065
  6. CYSTINE [Concomitant]
     Route: 065
  7. SYNTHROID [Concomitant]
     Route: 065
  8. ROCALTROL [Concomitant]
     Route: 065
  9. SALT SOLUTIONS [Concomitant]
     Route: 065
  10. MIRALAX [Concomitant]
     Route: 065
  11. PREVACID [Concomitant]
     Route: 065
  12. REGLAN [Concomitant]
     Route: 065
  13. UNSPECIFIED GROWTH HORMONE [Concomitant]
     Route: 065
  14. NORDITROPIN [Concomitant]
     Route: 065

REACTIONS (2)
  - ANAEMIA [None]
  - ANTI-ERYTHROPOIETIN ANTIBODY POSITIVE [None]
